FAERS Safety Report 8592486-6 (Version None)
Quarter: 2012Q3

REPORT INFORMATION
  Report Type: 
  Country: None (occurrence: None)
  Receive Date: 20120814
  Receipt Date: 20120713
  Transmission Date: 20120928
  Serious: No
  Sender: FDA-Public Use
  Company Number: US-009507513-1207USA006910

PATIENT

DRUGS (1)
  1. PEG-INTRON [Suspect]
     Dosage: UNK
     Dates: start: 20120118

REACTIONS (2)
  - FATIGUE [None]
  - DRY SKIN [None]
